APPROVED DRUG PRODUCT: OLOPATADINE HYDROCHLORIDE
Active Ingredient: OLOPATADINE HYDROCHLORIDE
Strength: EQ 0.1% BASE
Dosage Form/Route: SOLUTION/DROPS;OPHTHALMIC
Application: A204532 | Product #001
Applicant: SCIEGEN PHARMACEUTICALS INC
Approved: Jan 10, 2017 | RLD: No | RS: No | Type: DISCN